FAERS Safety Report 19914395 (Version 1)
Quarter: 2021Q4

REPORT INFORMATION
  Report Type: Spontaneous
  Country: JO (occurrence: JO)
  Receive Date: 20211005
  Receipt Date: 20211005
  Transmission Date: 20220303
  Serious: Yes (Hospitalization)
  Sender: FDA-Public Use
  Company Number: JO-HISUN PHARMACEUTICALS-2119175

PATIENT
  Age: 24 Month
  Sex: Male

DRUGS (3)
  1. DAUNORUBICIN HYDROCHLORIDE [Suspect]
     Active Substance: DAUNORUBICIN HYDROCHLORIDE
     Indication: T-cell type acute leukaemia
  2. VINCRISTINE SULFATE [Suspect]
     Active Substance: VINCRISTINE SULFATE
  3. DEXAMETHASONE [Suspect]
     Active Substance: DEXAMETHASONE

REACTIONS (4)
  - Muscular weakness [Recovering/Resolving]
  - Dyskinesia [Recovering/Resolving]
  - Mental status changes [Recovering/Resolving]
  - Mutism [Recovering/Resolving]
